FAERS Safety Report 13974298 (Version 1)
Quarter: 2017Q3

REPORT INFORMATION
  Report Type: Spontaneous
  Country: US (occurrence: US)
  Receive Date: 20170915
  Receipt Date: 20170915
  Transmission Date: 20171128
  Serious: Yes (Other)
  Sender: FDA-Public Use
  Company Number: US-PFIZER INC-2017397017

PATIENT
  Age: 74 Year
  Sex: Female

DRUGS (1)
  1. XELJANZ XR [Suspect]
     Active Substance: TOFACITINIB CITRATE
     Dosage: 11 MG, UNK
     Route: 048

REACTIONS (9)
  - Joint swelling [Unknown]
  - Oedema peripheral [Unknown]
  - Apnoea [Unknown]
  - Memory impairment [Unknown]
  - Weight increased [Unknown]
  - Synovitis [Unknown]
  - Soft tissue swelling [Unknown]
  - Pain [Unknown]
  - Dyspnoea [Unknown]
